FAERS Safety Report 11795935 (Version 4)
Quarter: 2016Q1

REPORT INFORMATION
  Report Type: Report from Study
  Country: NL (occurrence: NL)
  Receive Date: 20151203
  Receipt Date: 20160323
  Transmission Date: 20160525
  Serious: Yes (Other)
  Sender: FDA-Public Use
  Company Number: NL-BEH-2015056210

PATIENT
  Age: 50 Year
  Sex: Male

DRUGS (1)
  1. HAEMOCOMPLETTAN P [Suspect]
     Active Substance: FIBRINOGEN HUMAN
     Indication: SURGERY
     Dates: start: 20150928

REACTIONS (3)
  - Amaurosis fugax [Recovered/Resolved]
  - Transient ischaemic attack [Unknown]
  - Visual impairment [Recovered/Resolved]

NARRATIVE: CASE EVENT DATE: 20151003
